FAERS Safety Report 6608592-9 (Version None)
Quarter: 2010Q1

REPORT INFORMATION
  Report Type: 
  Country: None (occurrence: None)
  Receive Date: 20100301
  Receipt Date: 20100219
  Transmission Date: 20100710
  Serious: Yes (Other)
  Sender: FDA-Public Use
  Company Number: GXKR2010US02091

PATIENT
  Age: 22 Year
  Sex: Male

DRUGS (2)
  1. CO-TRIMOXAZOLE (NGX) [Suspect]
     Route: 065
  2. VORICONAZOLE [Suspect]
     Dosage: 250 MG, BID
     Route: 065

REACTIONS (4)
  - ERYTHEMA [None]
  - LENTIGO [None]
  - PHOTOSENSITIVITY REACTION [None]
  - SQUAMOUS CELL CARCINOMA [None]
